FAERS Safety Report 18675544 (Version 2)
Quarter: 2021Q1

REPORT INFORMATION
  Report Type: Report from Study
  Country: DE (occurrence: DE)
  Receive Date: 20201229
  Receipt Date: 20210111
  Transmission Date: 20210419
  Serious: Yes (Hospitalization)
  Sender: FDA-Public Use
  Company Number: DE-EXELIXIS-XL18420034210

PATIENT
  Age: 46 Year
  Sex: Male

DRUGS (27)
  1. TAVOR [Concomitant]
  2. XL184 [Suspect]
     Active Substance: CABOZANTINIB
     Indication: RENAL CELL CARCINOMA
     Dosage: 40 MG, QD
     Route: 048
     Dates: start: 20200721
  3. HYDROMORPHONE [Concomitant]
     Active Substance: HYDROMORPHONE
     Indication: PAIN
  4. NALOXEGOL [Concomitant]
     Active Substance: NALOXEGOL
  5. DUROGESIC [Concomitant]
     Active Substance: FENTANYL
     Indication: PAIN
  6. METAMIZOL [Concomitant]
     Active Substance: METAMIZOLE SODIUM
  7. LEFAX [Concomitant]
     Active Substance: DIMETHICONE
  8. TAMSULOSIN [Concomitant]
     Active Substance: TAMSULOSIN
  9. KALINOR [Concomitant]
  10. NATRIUM [Concomitant]
  11. MACROGOL [Concomitant]
     Active Substance: POLYETHYLENE GLYCOLS
  12. SIMETICON [Concomitant]
  13. ONDANSETRON [Concomitant]
     Active Substance: ONDANSETRON
  14. PREGABALIN. [Concomitant]
     Active Substance: PREGABALIN
  15. IPILIMUMAB [Suspect]
     Active Substance: IPILIMUMAB
     Indication: RENAL CELL CARCINOMA
     Dosage: 3 MG/KG, Q3WEEKS, 4 DOSES
     Route: 042
     Dates: start: 20200721
  16. NIVOLUMAB [Suspect]
     Active Substance: NIVOLUMAB
     Indication: RENAL CELL CARCINOMA
     Dosage: 3 MG/KG, Q3WEEKS, 4 DOSES
     Route: 042
     Dates: start: 20200721
  17. MOVENTIG [Concomitant]
     Active Substance: NALOXEGOL OXALATE
  18. METOCLOPRAMIDE HCL [Concomitant]
     Active Substance: METOCLOPRAMIDE HYDROCHLORIDE
  19. OMEPRAZOLE. [Concomitant]
     Active Substance: OMEPRAZOLE
  20. LAXOBERAL [Concomitant]
     Active Substance: SODIUM PICOSULFATE
  21. BALDRIANWURZEL HLP [Concomitant]
     Active Substance: VALERIAN
  22. LACTULOSE. [Concomitant]
     Active Substance: LACTULOSE
  23. NOVAMINSULFON [Concomitant]
     Active Substance: METAMIZOLE
  24. NOVALGIN [Concomitant]
  25. OMNIC [Concomitant]
     Active Substance: TAMSULOSIN HYDROCHLORIDE
  26. BISOPROLOL FUMARATE + HCTZ [Concomitant]
  27. PANTOPRAZOL [Concomitant]
     Active Substance: PANTOPRAZOLE SODIUM

REACTIONS (3)
  - Pneumonitis [Recovered/Resolved]
  - Pleural effusion [Recovering/Resolving]
  - COVID-19 [Recovering/Resolving]

NARRATIVE: CASE EVENT DATE: 20201018
